FAERS Safety Report 5926063-X (Version None)
Quarter: 2008Q4

REPORT INFORMATION
  Report Type: 
  Country: None (occurrence: None)
  Receive Date: 20081021
  Receipt Date: 20081014
  Transmission Date: 20090506
  Serious: Yes (Hospitalization)
  Sender: FDA-Public Use
  Company Number: FR-AMGEN-US312818

PATIENT
  Sex: Female

DRUGS (2)
  1. ENBREL [Suspect]
     Indication: DRUG USE FOR UNKNOWN INDICATION
     Dosage: UNKNOWN
     Route: 058
  2. METHOTREXATE [Suspect]
     Dosage: UNKNOWN

REACTIONS (2)
  - CENTRAL NERVOUS SYSTEM LESION [None]
  - DRUG TOXICITY [None]
